FAERS Safety Report 12429601 (Version 3)
Quarter: 2017Q2

REPORT INFORMATION
  Report Type: Report from Study
  Country: JP (occurrence: JP)
  Receive Date: 20160602
  Receipt Date: 20170612
  Transmission Date: 20170830
  Serious: Yes (Death, Life-Threatening)
  Sender: FDA-Public Use
  Company Number: JP-EISAI MEDICAL RESEARCH-EC-2016-017365

PATIENT
  Age: 73 Year
  Sex: Female
  Weight: 56 kg

DRUGS (3)
  1. LENVIMA [Suspect]
     Active Substance: LENVATINIB
     Route: 048
     Dates: start: 20150919, end: 20151008
  2. LENVIMA [Suspect]
     Active Substance: LENVATINIB
     Route: 048
     Dates: start: 20151009, end: 20151102
  3. LENVIMA [Suspect]
     Active Substance: LENVATINIB
     Indication: ANAPLASTIC THYROID CANCER
     Route: 048
     Dates: start: 20150908, end: 20150918

REACTIONS (2)
  - Malignant neoplasm progression [Fatal]
  - Oesophageal perforation [Not Recovered/Not Resolved]

NARRATIVE: CASE EVENT DATE: 20151102
